FAERS Safety Report 4299159-9 (Version None)
Quarter: 2004Q1

REPORT INFORMATION
  Report Type: 
  Country: None (occurrence: None)
  Receive Date: 20040217
  Receipt Date: 20031103
  Transmission Date: 20041129
  Serious: Yes (Hospitalization)
  Sender: FDA-Public Use
  Company Number: US051981

PATIENT
  Age: 4 Year
  Sex: Male
  Weight: 30.3 kg

DRUGS (7)
  1. ETANERCEPT [Suspect]
     Indication: JUVENILE ARTHRITIS
     Dosage: 25 MG, TWICE WEEKLY, SC
     Route: 058
     Dates: start: 20030801
  2. CAPTOPRIL [Concomitant]
  3. RANITIDINE [Concomitant]
  4. IRON [Concomitant]
  5. ACETAMINOPHEN [Concomitant]
  6. PREDNISONE [Concomitant]
  7. ISRADIPINE [Concomitant]

REACTIONS (5)
  - C-REACTIVE PROTEIN INCREASED [None]
  - CONDITION AGGRAVATED [None]
  - HAEMOGLOBIN DECREASED [None]
  - JUVENILE ARTHRITIS [None]
  - PLATELET COUNT INCREASED [None]
